FAERS Safety Report 4602020-0 (Version None)
Quarter: 2005Q1

REPORT INFORMATION
  Report Type: 
  Country: None (occurrence: None)
  Receive Date: 20050308
  Receipt Date: 20050202
  Transmission Date: 20050727
  Serious: Yes (Hospitalization)
  Sender: FDA-Public Use
  Company Number: DE-MERCK-0502DEU00023

PATIENT
  Age: 76 Year
  Sex: Male

DRUGS (9)
  1. VERAPAMIL HYDROCHLORIDE [Concomitant]
     Route: 048
  2. DIGITOXIN [Concomitant]
     Route: 048
  3. TAMSULOSIN HYDROCHLORIDE [Concomitant]
     Route: 048
  4. ZOLPIDEM TARTRATE [Concomitant]
     Route: 065
  5. PROSCAR [Suspect]
     Indication: BENIGN PROSTATIC HYPERPLASIA
     Route: 048
     Dates: start: 19950101, end: 20050101
  6. TORSEMIDE [Concomitant]
     Route: 048
  7. IRBESARTAN [Concomitant]
     Route: 048
  8. MAGNESIUM ASPARTATE AND POTASSIUM ASPARTATE [Concomitant]
     Route: 048
  9. PHENPROCOUMON [Concomitant]
     Route: 048
     Dates: start: 20030201

REACTIONS (10)
  - ARTHROPATHY [None]
  - BREAST TENDERNESS [None]
  - CARCINOEMBRYONIC ANTIGEN INCREASED [None]
  - GYNAECOMASTIA [None]
  - HYPERTENSION [None]
  - INGUINAL HERNIA [None]
  - INTERVERTEBRAL DISC DISORDER [None]
  - TACHYCARDIA [None]
  - TISSUE POLYPEPTIDE ANTIGEN INCREASED [None]
  - WEIGHT DECREASED [None]
